FAERS Safety Report 9539336 (Version 1)
Quarter: 2013Q3

REPORT INFORMATION
  Report Type: Spontaneous
  Country: FR (occurrence: FR)
  Receive Date: 20130920
  Receipt Date: 20130920
  Transmission Date: 20140515
  Serious: Yes (Hospitalization)
  Sender: FDA-Public Use
  Company Number: PHHY2013FR104534

PATIENT
  Age: 55 Year
  Sex: Male

DRUGS (2)
  1. TAREG [Suspect]
     Indication: HYPERTENSION
     Dosage: 80 MG, QD
     Route: 048
     Dates: start: 201305, end: 20130817
  2. AUGMENTIN /UNK/ [Suspect]
     Indication: SURGERY
     Dosage: UNK UKN, UNK
     Dates: start: 20130618, end: 20130627

REACTIONS (4)
  - Jaundice [Recovered/Resolved]
  - Influenza like illness [Recovered/Resolved]
  - Pyrexia [Recovered/Resolved]
  - Angioedema [Recovered/Resolved]
